FAERS Safety Report 4475824-5 (Version None)
Quarter: 2004Q4

REPORT INFORMATION
  Report Type: 
  Country: None (occurrence: None)
  Receive Date: 20041015
  Receipt Date: 20041006
  Transmission Date: 20050328
  Serious: Yes (Other)
  Sender: FDA-Public Use
  Company Number: AU-BRISTOL-MYERS SQUIBB COMPANY-12722690

PATIENT
  Sex: Female

DRUGS (3)
  1. AVAPRO [Suspect]
     Dates: start: 20041006
  2. INSULIN [Concomitant]
  3. COVERSYL [Concomitant]

REACTIONS (4)
  - CHEST PAIN [None]
  - DIZZINESS [None]
  - DYSPNOEA [None]
  - HEADACHE [None]
